FAERS Safety Report 6932370-4 (Version None)
Quarter: 2010Q3

REPORT INFORMATION
  Report Type: 
  Country: None (occurrence: None)
  Receive Date: 20100817
  Receipt Date: 20100803
  Transmission Date: 20110219
  Serious: Yes (Hospitalization)
  Sender: FDA-Public Use
  Company Number: 1-18178183

PATIENT
  Age: 54 Year
  Sex: Female
  Weight: 104.3273 kg

DRUGS (7)
  1. QUALAQUIN [Suspect]
     Indication: MUSCLE SPASMS
     Dosage: 1  CAPSULE AT BEDTIME, ORAL
     Route: 048
     Dates: start: 20050301, end: 20070802
  2. QUININE SULFATE 325 MG (QUALITEST) [Suspect]
     Indication: MUSCLE SPASMS
     Dosage: ,  AS NEEDED, ORAL
     Route: 048
     Dates: start: 20041007
  3. ZYRTEC [Concomitant]
  4. LASIX [Concomitant]
  5. KLOR-CON [Concomitant]
  6. LISINOPRIL [Concomitant]
  7. MULTI-VITAMIN [Concomitant]

REACTIONS (13)
  - ANXIETY [None]
  - ARTHRITIS [None]
  - ATRIAL FIBRILLATION [None]
  - ATRIOVENTRICULAR BLOCK [None]
  - EMOTIONAL DISORDER [None]
  - FEAR [None]
  - HYPERSENSITIVITY [None]
  - IDIOPATHIC THROMBOCYTOPENIC PURPURA [None]
  - MULTIPLE INJURIES [None]
  - NERVOUSNESS [None]
  - PAIN [None]
  - TENDON TRANSFER [None]
  - UNEVALUABLE EVENT [None]
